FAERS Safety Report 5606085-9 (Version None)
Quarter: 2008Q1

REPORT INFORMATION
  Report Type: 
  Country: None (occurrence: None)
  Receive Date: 20080123
  Receipt Date: 20080123
  Transmission Date: 20080703
  Serious: Yes (Death)
  Sender: FDA-Public Use
  Company Number: None

PATIENT
  Age: 48 Year
  Sex: Female

DRUGS (7)
  1. RIFAMPICIN [Suspect]
     Indication: TUBERCULOSIS
     Dosage: 1 TABLET EVERY DAY  PO
     Route: 048
     Dates: start: 20070307
  2. ISONIAZID [Suspect]
     Indication: TUBERCULOSIS
     Dosage: 1 TABLET EVERY DAY PO
     Route: 048
     Dates: start: 20070307
  3. ETHAMBUTOL HYDROCHLORIDE [Suspect]
     Indication: TUBERCULOSIS
     Dosage: 1 TABLET  EVERY DAY  PO
     Route: 048
     Dates: start: 20070307
  4. PYRAZINAMIDE [Suspect]
     Indication: TUBERCULOSIS
     Dosage: 1 TABLET EVERY DAY PO
     Route: 048
     Dates: start: 20070307
  5. LAMIVUDINE [Suspect]
     Indication: HIV INFECTION
     Dosage: 300MG BID PO
     Route: 048
     Dates: start: 20070502
  6. STAVUDINE [Suspect]
     Indication: HIV INFECTION
     Dosage: 60MG BID PO
     Route: 048
     Dates: start: 20070502
  7. EFAVIRENZ [Suspect]
     Indication: HIV INFECTION
     Dosage: 600MG  QD  PO
     Route: 048
     Dates: start: 20070502

REACTIONS (6)
  - ELECTROLYTE IMBALANCE [None]
  - LACTIC ACIDOSIS [None]
  - MULTIPLE-DRUG RESISTANCE [None]
  - NAUSEA [None]
  - TUBERCULOSIS [None]
  - VOMITING [None]
